FAERS Safety Report 8484056-5 (Version None)
Quarter: 2012Q3

REPORT INFORMATION
  Report Type: 
  Country: None (occurrence: None)
  Receive Date: 20120703
  Receipt Date: 20120625
  Transmission Date: 20120928
  Serious: Yes (Hospitalization)
  Sender: FDA-Public Use
  Company Number: US-BAYER-201034331NA

PATIENT
  Age: 40 Year
  Sex: Female
  Weight: 50 kg

DRUGS (7)
  1. CELEXA [Concomitant]
  2. LEXAPRO [Concomitant]
     Indication: PREMENSTRUAL SYNDROME
  3. TOPAMAX [Concomitant]
  4. AXERT [Concomitant]
     Indication: MIGRAINE
  5. COMBUNOX [Concomitant]
     Dosage: 5/400 MG EVERY 6 HOURS AS NEEDED
  6. YAZ [Suspect]
     Indication: PREMENSTRUAL SYNDROME
     Dosage: UNK
     Route: 048
     Dates: start: 20070401, end: 20070901
  7. AMBIEN [Concomitant]

REACTIONS (6)
  - PAIN [None]
  - DEEP VEIN THROMBOSIS [None]
  - HYPERKALAEMIA [None]
  - PULMONARY EMBOLISM [None]
  - OEDEMA PERIPHERAL [None]
  - INJURY [None]
